FAERS Safety Report 10174220 (Version 1)
Quarter: 2014Q2

REPORT INFORMATION
  Report Type: Spontaneous
  Country: HU (occurrence: HU)
  Receive Date: 20140515
  Receipt Date: 20140515
  Transmission Date: 20141212
  Serious: Yes (Life-Threatening, Hospitalization)
  Sender: FDA-Public Use
  Company Number: HU-WATSON-2014-10074

PATIENT
  Age: 56 Year
  Sex: Female

DRUGS (3)
  1. CHLOROQUINE (UNKNOWN) [Suspect]
     Indication: MIXED CONNECTIVE TISSUE DISEASE
     Dosage: 250 MG, BID
     Route: 065
     Dates: start: 200908
  2. METHOTREXATE [Concomitant]
     Indication: MIXED CONNECTIVE TISSUE DISEASE
     Dosage: 15 MG, 1/WEEK
     Route: 065
     Dates: start: 200908
  3. METHYLPREDNISOLONE [Concomitant]
     Indication: MIXED CONNECTIVE TISSUE DISEASE
     Dosage: 4 MG, DAILY
     Route: 065
     Dates: start: 200908

REACTIONS (6)
  - Atrioventricular block complete [Recovering/Resolving]
  - Electrocardiogram QT prolonged [Recovered/Resolved]
  - Torsade de pointes [Recovered/Resolved]
  - Ventricular fibrillation [Recovered/Resolved]
  - Cardiomyopathy [Recovered/Resolved]
  - Prescribed overdose [Recovered/Resolved]
